FAERS Safety Report 23334839 (Version 2)
Quarter: 2024Q1

REPORT INFORMATION
  Report Type: Spontaneous
  Country: JP (occurrence: JP)
  Receive Date: 20231224
  Receipt Date: 20240201
  Transmission Date: 20240410
  Serious: Yes (Other)
  Sender: FDA-Public Use
  Company Number: JP-SA-2023SA394854

PATIENT
  Age: 49 Year
  Sex: Female
  Weight: 65 kg

DRUGS (6)
  1. DUPIXENT [Suspect]
     Active Substance: DUPILUMAB
     Indication: Dermatitis atopic
     Dosage: 600 MG, 1X
     Route: 058
     Dates: start: 20231017, end: 20231017
  2. DUPIXENT [Suspect]
     Active Substance: DUPILUMAB
     Dosage: 300 MG, QOW
     Route: 058
     Dates: start: 20231106
  3. MYSER [DIFLUPREDNATE] [Concomitant]
     Indication: Dermatitis atopic
     Dosage: DAILY DOSE: 0.5 G
     Route: 061
     Dates: start: 20230904
  4. ALCLOMETASONE DIPROPIONATE [Concomitant]
     Active Substance: ALCLOMETASONE DIPROPIONATE
     Indication: Dermatitis atopic
     Dosage: DAILY DOSE: SMALL
     Route: 061
     Dates: start: 20230904
  5. DEXAMETHASONE DIPROPIONATE [Concomitant]
     Active Substance: DEXAMETHASONE DIPROPIONATE
     Indication: Dermatitis atopic
     Dosage: DAILY DOSE: 0.1 G
     Route: 061
     Dates: start: 20231003
  6. BEPOTASTINE BESYLATE [Concomitant]
     Active Substance: BEPOTASTINE BESYLATE
     Indication: Dermatitis atopic
     Dosage: 10 MG, BID
     Route: 048
     Dates: start: 20230904

REACTIONS (5)
  - Erysipelas [Recovered/Resolved]
  - Auricular swelling [Recovered/Resolved]
  - Erythema [Recovered/Resolved]
  - Swelling face [Recovered/Resolved]
  - Erythema [Recovered/Resolved]

NARRATIVE: CASE EVENT DATE: 20231022
